FAERS Safety Report 15951259 (Version 2)
Quarter: 2019Q1

REPORT INFORMATION
  Report Type: Report from Study
  Country: US (occurrence: US)
  Receive Date: 20190211
  Receipt Date: 20190214
  Transmission Date: 20190417
  Serious: Yes (Hospitalization)
  Sender: FDA-Public Use
  Company Number: US-PFIZER INC-2019011928

PATIENT
  Age: 54 Year
  Sex: Male

DRUGS (3)
  1. SUTENT [Suspect]
     Active Substance: SUNITINIB MALATE
     Indication: RENAL CELL CARCINOMA
     Dosage: 50 MG, CYCLIC (DAILY, 4 WEEKS, THEN 2 WEEKS OFF)
     Route: 048
     Dates: start: 20181213
  2. SUTENT [Suspect]
     Active Substance: SUNITINIB MALATE
     Dosage: 50 MG, CYCLIC  (DAILY 4 WEEKS, THEN 2 WEEKS OFF)
     Route: 048
     Dates: start: 20190128
  3. SUTENT [Suspect]
     Active Substance: SUNITINIB MALATE
     Indication: RENAL CANCER
     Dosage: 50 MG, CYCLIC (4 WEEKS, THEN 2 WEEKS OFF)
     Route: 048
     Dates: start: 20190124, end: 20190127

REACTIONS (16)
  - Neoplasm progression [Unknown]
  - White blood cell count increased [Unknown]
  - Renal function test abnormal [Not Recovered/Not Resolved]
  - Gallbladder disorder [Unknown]
  - Dehydration [Unknown]
  - Nausea [Not Recovered/Not Resolved]
  - Fatigue [Not Recovered/Not Resolved]
  - Abdominal pain [Not Recovered/Not Resolved]
  - Renal disorder [Unknown]
  - Anaemia [Not Recovered/Not Resolved]
  - Bronchitis [Unknown]
  - Asthenia [Not Recovered/Not Resolved]
  - Dyspepsia [Recovering/Resolving]
  - Back pain [Not Recovered/Not Resolved]
  - Liver disorder [Unknown]
  - Chills [Unknown]

NARRATIVE: CASE EVENT DATE: 2018
